FAERS Safety Report 9465588 (Version 1)
Quarter: 2013Q3

REPORT INFORMATION
  Report Type: Report from Study
  Country: FR (occurrence: FR)
  Receive Date: 20130820
  Receipt Date: 20130820
  Transmission Date: 20140515
  Serious: Yes (Death, Hospitalization, Other)
  Sender: FDA-Public Use
  Company Number: FR-GENZYME-CAMP-1003090

PATIENT
  Age: 62 Year
  Sex: Female

DRUGS (7)
  1. CAMPATH [Suspect]
     Indication: CHRONIC LYMPHOCYTIC LEUKAEMIA RECURRENT
     Dosage: 30 MG, 3X/W
     Route: 058
     Dates: start: 20130204, end: 20130401
  2. CAMPATH [Suspect]
     Dosage: UNK
     Route: 065
     Dates: start: 20130405, end: 20130408
  3. CAMPATH [Suspect]
     Dosage: UNK
     Route: 065
     Dates: start: 20130415, end: 20130426
  4. BACTRIM [Concomitant]
     Indication: PROPHYLAXIS
     Dosage: 1 DF, 3X/W
     Route: 065
     Dates: start: 20130204
  5. LEDERFOLIN [Concomitant]
     Indication: PROPHYLAXIS
     Dosage: 25 MG, UNK
     Route: 065
     Dates: start: 20130204
  6. ZELITREX [Concomitant]
     Indication: PROPHYLAXIS
     Dosage: 500 MG, QD
     Route: 065
     Dates: start: 20130204
  7. ROVALCYTE [Concomitant]
     Indication: CYTOMEGALOVIRUS INFECTION
     Dosage: 450 MG, BID
     Route: 065
     Dates: start: 20130204

REACTIONS (4)
  - Histiocytosis haematophagic [Fatal]
  - Neutropenia [Recovered/Resolved]
  - Adenovirus infection [Unknown]
  - Pyrexia [Recovered/Resolved]
